FAERS Safety Report 14172365 (Version 1)
Quarter: 2017Q4

REPORT INFORMATION
  Report Type: Spontaneous
  Country: US (occurrence: US)
  Receive Date: 20171108
  Receipt Date: 20171108
  Transmission Date: 20180321
  Serious: Yes (Disabling)
  Sender: FDA-Public Use
  Company Number: None

PATIENT
  Age: 62 Year
  Sex: Female
  Weight: 74.25 kg

DRUGS (4)
  1. ESTRADIOL PATCH (VIVELLE DOT GENERIC) [Concomitant]
  2. TRAZODONE [Concomitant]
     Active Substance: TRAZODONE HYDROCHLORIDE
  3. YUVAFEM [Suspect]
     Active Substance: ESTRADIOL HEMIHYDRATE
     Indication: VAGINAL DISORDER
     Dosage: VAGINAL; 8 INSERTS; TWICE A WEEK?
     Route: 067
  4. ZINC. [Concomitant]
     Active Substance: ZINC

REACTIONS (9)
  - Rash [None]
  - Flushing [None]
  - Hot flush [None]
  - Product substitution issue [None]
  - Oedema peripheral [None]
  - Vulvovaginal pruritus [None]
  - Product packaging issue [None]
  - Face oedema [None]
  - Blood pressure increased [None]

NARRATIVE: CASE EVENT DATE: 20171012
